FAERS Safety Report 5634185-6 (Version None)
Quarter: 2008Q1

REPORT INFORMATION
  Report Type: 
  Country: None (occurrence: None)
  Receive Date: 20080221
  Receipt Date: 20080221
  Transmission Date: 20080703
  Serious: No
  Sender: FDA-Public Use
  Company Number: None

PATIENT
  Sex: Female
  Weight: 83.4619 kg

DRUGS (6)
  1. GEODON [Suspect]
     Indication: BIPOLAR DISORDER
     Dosage: 60 MG QHS PO
     Route: 048
  2. GEODON [Suspect]
     Indication: BIPOLAR DISORDER
     Dosage: 20MG QHS PO
     Route: 048
  3. TRAZODONE HCL [Suspect]
     Indication: BIPOLAR DISORDER
     Dosage: 50MG QHS PRN PO OFF AND ON FOR 2-3 MONTHS
     Route: 048
  4. CYMBALTA [Concomitant]
  5. ALLEGRA [Concomitant]
  6. TIMOLOL DROPS [Concomitant]

REACTIONS (6)
  - COUGH [None]
  - DEPRESSED LEVEL OF CONSCIOUSNESS [None]
  - DRUG INTERACTION [None]
  - INSOMNIA [None]
  - LOSS OF CONSCIOUSNESS [None]
  - NASAL CONGESTION [None]
